FAERS Safety Report 15377101 (Version 3)
Quarter: 2020Q2

REPORT INFORMATION
  Report Type: Spontaneous
  Country: FR (occurrence: FR)
  Receive Date: 20180913
  Receipt Date: 20200414
  Transmission Date: 20200713
  Serious: Yes (Death, Other)
  Sender: FDA-Public Use
  Company Number: FR-SUN PHARMACEUTICAL INDUSTRIES LTD-2018RR-184240

PATIENT
  Age: 22 Year
  Sex: Female

DRUGS (1)
  1. PARACETAMOL [Suspect]
     Active Substance: ACETAMINOPHEN
     Indication: ABDOMINAL PAIN
     Dosage: UNK ()
     Route: 065

REACTIONS (7)
  - Toxicity to various agents [Fatal]
  - Drug-induced liver injury [Fatal]
  - Analgesic drug level [Fatal]
  - Hepatocellular injury [Fatal]
  - Death [Fatal]
  - Multiple organ dysfunction syndrome [Fatal]
  - Pain in extremity [Fatal]

NARRATIVE: CASE EVENT DATE: 201712
